FAERS Safety Report 5007490-4 (Version None)
Quarter: 2006Q2

REPORT INFORMATION
  Report Type: 
  Country: None (occurrence: None)
  Receive Date: 20060517
  Receipt Date: 20060501
  Transmission Date: 20061013
  Serious: Yes (Hospitalization)
  Sender: FDA-Public Use
  Company Number: 1-13792744

PATIENT
  Age: 65 Year
  Sex: Female

DRUGS (1)
  1. UMECTA EMULSION [Suspect]
     Indication: ECZEMA
     Dosage: THIN FILM TO ELBOW X 1, CUTANEOUS
     Route: 003
     Dates: start: 20060401, end: 20060401

REACTIONS (12)
  - CELLULITIS [None]
  - DRY SKIN [None]
  - ERYTHEMA [None]
  - EXFOLIATIVE RASH [None]
  - JOINT SWELLING [None]
  - LOCALISED OEDEMA [None]
  - PAIN [None]
  - PYREXIA [None]
  - SKIN FISSURES [None]
  - SKIN IRRITATION [None]
  - WHITE BLOOD CELL COUNT DECREASED [None]
  - WOUND SECRETION [None]
